FAERS Safety Report 5878441-5 (Version None)
Quarter: 2008Q3

REPORT INFORMATION
  Report Type: 
  Country: None (occurrence: None)
  Receive Date: 20080911
  Receipt Date: 20071031
  Transmission Date: 20090109
  Serious: No
  Sender: FDA-Public Use
  Company Number: US-AMGEN-KDL250546

PATIENT
  Sex: Female

DRUGS (3)
  1. NEUPOGEN [Suspect]
     Indication: CHEMOTHERAPY
     Dates: start: 20070801
  2. ADRIAMYCIN PFS [Concomitant]
  3. TAXOL [Concomitant]

REACTIONS (5)
  - BLOOD COUNT ABNORMAL [None]
  - PARAESTHESIA ORAL [None]
  - PRURITUS [None]
  - RASH [None]
  - VASCULITIS [None]
